FAERS Safety Report 7288170-1 (Version None)
Quarter: 2011Q1

REPORT INFORMATION
  Report Type: 
  Country: None (occurrence: None)
  Receive Date: 20110207
  Receipt Date: 20110207
  Transmission Date: 20110831
  Serious: Yes (Hospitalization)
  Sender: FDA-Public Use
  Company Number: None

PATIENT
  Age: 77 Year
  Sex: Female
  Weight: 68.9467 kg

DRUGS (1)
  1. BENDAMUSTINE [Suspect]
     Indication: NON-SMALL CELL LUNG CANCER
     Dosage: 120 MG/M2 IV
     Route: 042
     Dates: start: 20100810, end: 20101101

REACTIONS (3)
  - TRANSIENT ISCHAEMIC ATTACK [None]
  - COUGH [None]
  - INFECTION [None]
